FAERS Safety Report 9293817 (Version 1)
Quarter: 2013Q2

REPORT INFORMATION
  Report Type: Spontaneous
  Country: US (occurrence: US)
  Receive Date: 20130516
  Receipt Date: 20130516
  Transmission Date: 20140414
  Serious: No
  Sender: FDA-Public Use
  Company Number: US-009507513-1305USA010080

PATIENT
  Sex: Female

DRUGS (2)
  1. CLARITIN [Suspect]
     Indication: PRODUCT USED FOR UNKNOWN INDICATION
     Dosage: UNK, ONCE
     Route: 048
     Dates: start: 20130426
  2. CLARITIN [Suspect]
     Dosage: UNK, ONCE
     Route: 048
     Dates: start: 20130430

REACTIONS (3)
  - Poor quality sleep [Unknown]
  - Dry mouth [Not Recovered/Not Resolved]
  - Drug ineffective [Unknown]
